FAERS Safety Report 7338928-5 (Version None)
Quarter: 2011Q1

REPORT INFORMATION
  Report Type: 
  Country: None (occurrence: None)
  Receive Date: 20110308
  Receipt Date: 20110224
  Transmission Date: 20110831
  Serious: Yes (Other)
  Sender: FDA-Public Use
  Company Number: US-CELGENEUS-163-21880-10110689

PATIENT
  Sex: Male
  Weight: 81.65 kg

DRUGS (8)
  1. REVLIMID [Suspect]
     Indication: MULTIPLE MYELOMA
     Dosage: 15 MILLIGRAM
     Route: 048
     Dates: start: 20080429
  2. ASPIRIN [Concomitant]
     Dosage: 325 MILLIGRAM
     Route: 048
  3. COSOPT [Concomitant]
     Route: 047
  4. CEFAZOLIN [Concomitant]
     Route: 065
  5. TIMOPTIC [Concomitant]
     Route: 047
  6. TOBRAMYCIN [Concomitant]
     Route: 065
  7. MULTI-VITAMINS [Concomitant]
     Route: 048
  8. XALATAN [Concomitant]
     Route: 065

REACTIONS (2)
  - CORNEAL TRANSPLANT [None]
  - EYE INFECTION [None]
